FAERS Safety Report 8786616 (Version 2)
Quarter: 2012Q4

REPORT INFORMATION
  Report Type: 
  Country: US (occurrence: US)
  Receive Date: 20120917
  Receipt Date: 20121011
  Transmission Date: 20130627
  Serious: Yes (Hospitalization)
  Sender: FDA-Public Use
  Company Number: 2006BI009980

PATIENT
  Age: 59 Year
  Sex: Male
  Weight: 88 kg

DRUGS (7)
  1. AVONEX [Suspect]
     Indication: MULTIPLE SCLEROSIS
     Route: 030
     Dates: start: 20010206, end: 20010327
  2. AVONEX [Suspect]
     Indication: MULTIPLE SCLEROSIS
     Route: 030
     Dates: start: 20020827
  3. AVONEX [Suspect]
     Indication: MULTIPLE SCLEROSIS
     Route: 030
  4. PREVACID [Concomitant]
     Indication: GASTRIC DISORDER
  5. CELEBREX [Concomitant]
     Indication: PREMEDICATION
  6. STELAZINE [Concomitant]
  7. MULTIVITAMIN [Concomitant]

REACTIONS (7)
  - Escherichia infection [Recovered/Resolved]
  - Escherichia sepsis [Recovered/Resolved]
  - Prostatic specific antigen increased [Unknown]
  - Chest pain [Recovered/Resolved]
  - Influenza like illness [Recovered/Resolved]
  - Feeling hot [Recovered/Resolved]
  - Injection site pain [Recovered/Resolved]
